FAERS Safety Report 23349561 (Version 1)
Quarter: 2023Q4

REPORT INFORMATION
  Report Type: Spontaneous
  Country: US (occurrence: US)
  Receive Date: 20231229
  Receipt Date: 20231229
  Transmission Date: 20240109
  Serious: No
  Sender: FDA-Public Use
  Company Number: US-Ipsen Biopharmaceuticals, Inc.-2023-28421

PATIENT
  Age: 15 Year
  Sex: Male
  Weight: 58 kg

DRUGS (3)
  1. TAZVERIK [Suspect]
     Active Substance: TAZEMETOSTAT HYDROBROMIDE
     Indication: Malignant connective tissue neoplasm
     Route: 048
     Dates: start: 202301
  2. CVS PHARMACY IBUPROFEN [Concomitant]
     Active Substance: IBUPROFEN
  3. FLUTICASONE [Concomitant]
     Active Substance: FLUTICASONE

REACTIONS (1)
  - COVID-19 [Recovering/Resolving]
